FAERS Safety Report 16159859 (Version 1)
Quarter: 2019Q2

REPORT INFORMATION
  Report Type: Spontaneous
  Country: JP (occurrence: JP)
  Receive Date: 20190404
  Receipt Date: 20190404
  Transmission Date: 20190711
  Serious: Yes (Hospitalization, Other)
  Sender: FDA-Public Use
  Company Number: JP-SEATTLE GENETICS-2019SGN00076

PATIENT
  Age: 78 Year
  Sex: Male
  Weight: 48.4 kg

DRUGS (1)
  1. ADCETRIS [Suspect]
     Active Substance: BRENTUXIMAB VEDOTIN
     Indication: HODGKIN^S DISEASE RECURRENT
     Dosage: 86 MILLIGRAM, Q21D
     Route: 041
     Dates: start: 20161005, end: 20170816

REACTIONS (3)
  - Hodgkin^s disease recurrent [Unknown]
  - Neuropathy peripheral [Not Recovered/Not Resolved]
  - Disease progression [Unknown]

NARRATIVE: CASE EVENT DATE: 20161116
